FAERS Safety Report 9402041 (Version 3)
Quarter: 2013Q4

REPORT INFORMATION
  Report Type: Spontaneous
  Country: DE (occurrence: DE)
  Receive Date: 20130716
  Receipt Date: 20131115
  Transmission Date: 20140711
  Serious: Yes (Life-Threatening, Hospitalization, Disabling, Other)
  Sender: FDA-Public Use
  Company Number: PHHY2013DE074576

PATIENT
  Age: 54 Year
  Sex: Female
  Weight: 60 kg

DRUGS (6)
  1. FORADIL [Suspect]
     Indication: BRONCHITIS
     Dosage: 12 UG, BID
     Dates: start: 2006
  2. FORADIL [Suspect]
     Dosage: UNK UKN, UNK
  3. SPIRIVA [Concomitant]
     Dosage: UNK
  4. FOSTER [Concomitant]
     Dosage: UNK
  5. AMBROXOL [Concomitant]
     Dosage: UNK
  6. SALBUTAMOL [Concomitant]
     Dosage: UNK UKN, UNK

REACTIONS (6)
  - Haemoptysis [Not Recovered/Not Resolved]
  - Condition aggravated [Unknown]
  - Infection [Unknown]
  - Breast cancer [Recovering/Resolving]
  - Hot flush [Not Recovered/Not Resolved]
  - Sleep disorder [Not Recovered/Not Resolved]
